FAERS Safety Report 4567863-0 (Version None)
Quarter: 2005Q1

REPORT INFORMATION
  Report Type: 
  Country: None (occurrence: None)
  Receive Date: 20050202
  Receipt Date: 20041116
  Transmission Date: 20050727
  Serious: No
  Sender: FDA-Public Use
  Company Number: US-GLAXOSMITHKLINE-A0534142A

PATIENT
  Age: 55 Year
  Sex: Female

DRUGS (3)
  1. AVANDAMET [Suspect]
     Dosage: 1TAB TWICE PER DAY
     Route: 048
     Dates: start: 20040301
  2. DYAZIDE [Concomitant]
  3. PATANOL [Concomitant]
     Route: 065

REACTIONS (1)
  - CONTUSION [None]
